FAERS Safety Report 9166550 (Version 4)
Quarter: 2013Q3

REPORT INFORMATION
  Report Type: Spontaneous
  Country: US (occurrence: US)
  Receive Date: 20130315
  Receipt Date: 20130909
  Transmission Date: 20140515
  Serious: Yes (Hospitalization)
  Sender: FDA-Public Use
  Company Number: US-GILEAD-2013-0071407

PATIENT
  Sex: Female

DRUGS (9)
  1. LETAIRIS [Suspect]
     Indication: PULMONARY HYPERTENSION
     Dosage: 10 MG, UNK
     Dates: start: 20120409
  2. LETAIRIS [Suspect]
  3. COUMADIN                           /00014802/ [Concomitant]
     Dosage: UNK
  4. ADVAIR [Concomitant]
  5. DIGOXIN [Concomitant]
  6. LASIX                              /00032601/ [Concomitant]
  7. K-LOR [Concomitant]
  8. PROVENTIL                          /00139501/ [Concomitant]
  9. LISINOPRIL [Concomitant]

REACTIONS (2)
  - Iron deficiency anaemia [Unknown]
  - Dyspnoea [Recovering/Resolving]
